FAERS Safety Report 16997571 (Version 3)
Quarter: 2020Q2

REPORT INFORMATION
  Report Type: Spontaneous
  Country: DE (occurrence: DE)
  Receive Date: 20191106
  Receipt Date: 20200407
  Transmission Date: 20200713
  Serious: Yes (Hospitalization, Other)
  Sender: FDA-Public Use
  Company Number: DE-AUROBINDO-AUR-APL-2018-037316

PATIENT
  Sex: Female
  Weight: 72 kg

DRUGS (9)
  1. KISQALI [Suspect]
     Active Substance: RIBOCICLIB
     Dosage: 400 MILLIGRAM, ONCE A DAY (SCHEME: INTAKE 21 DAYS WITH 7 DAYS PAUSE)
     Route: 048
     Dates: start: 20180711, end: 20180725
  2. LIXIANA [Concomitant]
     Active Substance: EDOXABAN TOSYLATE
     Indication: ANTICOAGULANT THERAPY
     Dosage: 60 MILLIGRAM
     Route: 048
     Dates: start: 2018, end: 20181025
  3. KISQALI [Suspect]
     Active Substance: RIBOCICLIB
     Indication: BREAST CANCER METASTATIC
     Dosage: 600 MILLIGRAM, ONCE A DAY, 21 DAYS WITH 7 DAYS PAUSE
     Route: 048
     Dates: start: 20180614, end: 20180625
  4. KISQALI [Suspect]
     Active Substance: RIBOCICLIB
     Dosage: 200 MILLIGRAM, ONCE A DAY (SCHEME: INTAKE 21 DAYS WITH 7 DAYS PAUSE)
     Route: 048
     Dates: start: 20180814, end: 20190728
  5. LETROZOLE. [Suspect]
     Active Substance: LETROZOLE
     Indication: BREAST CANCER METASTATIC
     Dosage: 2.5 MILLIGRAM, ONCE A DAY
     Route: 048
     Dates: start: 20180614
  6. KISQALI [Suspect]
     Active Substance: RIBOCICLIB
     Dosage: 400 MILLIGRAM, ONCE A DAY (SCHEME: INTAKE 21 DAYS WITH 7 DAYS PAUSE)
     Route: 048
     Dates: start: 20181212
  7. KISQALI [Suspect]
     Active Substance: RIBOCICLIB
     Dosage: 600 MILLIGRAM, ONCE A DAY (SCHEME: INTAKE 21 DAYS WITH 7 DAYS PAUSE)
     Route: 048
     Dates: start: 20180626, end: 20180710
  8. KISQALI [Suspect]
     Active Substance: RIBOCICLIB
     Dosage: 400 MILLIGRAM, ONCE A DAY (SCHEME: INTAKE 21 DAYS WITH 7 DAYS PAUSE)
     Route: 048
     Dates: start: 20190729
  9. KISQALI [Suspect]
     Active Substance: RIBOCICLIB
     Dosage: 200 MILLIGRAM, ONCE A DAY (SCHEME: INTAKE 21 DAYS WITH 7 DAYS PAUSE)
     Route: 048
     Dates: start: 20180814, end: 20181211

REACTIONS (8)
  - Upper gastrointestinal haemorrhage [Recovered/Resolved]
  - Thrombocytopenia [Recovered/Resolved]
  - Lymphoedema [Not Recovered/Not Resolved]
  - Leukopenia [Recovered/Resolved]
  - Angiodysplasia [Recovered/Resolved]
  - Haemoglobin decreased [Recovered/Resolved]
  - Melaena [Recovered/Resolved]
  - Chronic obstructive pulmonary disease [Not Recovered/Not Resolved]

NARRATIVE: CASE EVENT DATE: 20180626
